FAERS Safety Report 5542455-5 (Version None)
Quarter: 2007Q4

REPORT INFORMATION
  Report Type: 
  Country: None (occurrence: None)
  Receive Date: 20071210
  Receipt Date: 20071127
  Transmission Date: 20080405
  Serious: Yes (Other)
  Sender: FDA-Public Use
  Company Number: US-BAYER-200713187BCC

PATIENT
  Age: 78 Year
  Sex: Male
  Weight: 88 kg

DRUGS (4)
  1. MILK OF MAGNESIA TAB [Suspect]
     Indication: CONSTIPATION
     Dosage: TOTAL DAILY DOSE: 22.5 ML  UNIT DOSE: 15 ML
     Route: 048
     Dates: start: 20060901
  2. VITAMINS [Concomitant]
  3. CHOLESTEROL MEDICATION [Concomitant]
  4. PREDNISONE [Concomitant]

REACTIONS (1)
  - BLOOD CREATINE INCREASED [None]
